FAERS Safety Report 5019992-5 (Version None)
Quarter: 2006Q2

REPORT INFORMATION
  Report Type: 
  Country: None (occurrence: None)
  Receive Date: 20060602
  Receipt Date: 20060524
  Transmission Date: 20061013
  Serious: Yes (Hospitalization)
  Sender: FDA-Public Use
  Company Number: 200611975GDS

PATIENT
  Sex: Male
  Weight: 68.5 kg

DRUGS (9)
  1. SORAFENIB [Suspect]
     Indication: RENAL CELL CARCINOMA STAGE UNSPECIFIED
     Dosage: 400 MG, BID, ORAL
     Route: 048
     Dates: start: 20060414, end: 20060512
  2. TRAMADOL HCL [Concomitant]
  3. STILNOX [Concomitant]
  4. TAVANIC [Concomitant]
  5. TENORMIN [Concomitant]
  6. PLAVIX [Concomitant]
  7. PREDNISONE [Concomitant]
  8. NEXIUM [Concomitant]
  9. ACETAMINOPHEN [Concomitant]

REACTIONS (3)
  - ABDOMINAL PAIN [None]
  - ANAEMIA [None]
  - DYSPNOEA [None]
